FAERS Safety Report 16874949 (Version 2)
Quarter: 2020Q1

REPORT INFORMATION
  Report Type: Spontaneous
  Country: US (occurrence: US)
  Receive Date: 20191001
  Receipt Date: 20200224
  Transmission Date: 20200409
  Serious: No
  Sender: FDA-Public Use
  Company Number: US-JNJFOC-20190936255

PATIENT
  Age: 23 Year
  Sex: Female
  Weight: 51.8 kg

DRUGS (19)
  1. PROLIA [Concomitant]
     Active Substance: DENOSUMAB
  2. ESCITALOPRAM [Concomitant]
     Active Substance: ESCITALOPRAM OXALATE
     Indication: DEPRESSION
  3. LITHIUM. [Concomitant]
     Active Substance: LITHIUM
     Indication: DEPRESSION
     Dosage: ONCE DAILY IN THE AFTERNOON
  4. RISPERDAL CONSTA [Suspect]
     Active Substance: RISPERIDONE
     Indication: AGGRESSION
     Route: 030
     Dates: start: 20180529
  5. POLYCARBOPHIL [Concomitant]
     Active Substance: POLYCARBOPHIL
  6. CLONAZEPAM. [Concomitant]
     Active Substance: CLONAZEPAM
     Indication: AUTISM SPECTRUM DISORDER
     Dosage: ONCE DAILY IN THE EVENING
  7. BISACODYL. [Concomitant]
     Active Substance: BISACODYL
  8. CLONAZEPAM. [Concomitant]
     Active Substance: CLONAZEPAM
     Indication: AGGRESSION
     Dosage: ONCE DAILY IN THE MORNING
  9. CLONIDINE. [Concomitant]
     Active Substance: CLONIDINE
     Indication: AUTISM SPECTRUM DISORDER
     Dosage: 0.15 MG DAILY
  10. PYRIDOXINE [Concomitant]
     Active Substance: PYRIDOXINE
  11. KEPPRA [Concomitant]
     Active Substance: LEVETIRACETAM
  12. LITHIUM. [Concomitant]
     Active Substance: LITHIUM
     Indication: AGGRESSION
     Dosage: TWICE DAILY, IN MORNING AND EVENING
  13. CLONAZEPAM. [Concomitant]
     Active Substance: CLONAZEPAM
     Dosage: ONCE DAILY AT 2 PM
  14. RISPERDAL CONSTA [Suspect]
     Active Substance: RISPERIDONE
     Indication: AUTISM SPECTRUM DISORDER
     Route: 030
     Dates: start: 201607, end: 201905
  15. DEBROX [Concomitant]
     Active Substance: CARBAMIDE PEROXIDE
     Dosage: EAR DROPS
  16. ESCITALOPRAM [Concomitant]
     Active Substance: ESCITALOPRAM OXALATE
     Indication: AGGRESSION
  17. RISPERDAL [Concomitant]
     Active Substance: RISPERIDONE
  18. SENOKOT-S [Concomitant]
     Active Substance: DOCUSATE SODIUM\SENNOSIDES
  19. SINGULAIR [Concomitant]
     Active Substance: MONTELUKAST SODIUM

REACTIONS (4)
  - Off label use [Unknown]
  - Abnormal behaviour [Recovered/Resolved]
  - Inappropriate schedule of product administration [Unknown]
  - Product use in unapproved indication [Unknown]

NARRATIVE: CASE EVENT DATE: 201607
